FAERS Safety Report 6879080-X (Version None)
Quarter: 2010Q3

REPORT INFORMATION
  Report Type: 
  Country: None (occurrence: None)
  Receive Date: 20100728
  Receipt Date: 20100715
  Transmission Date: 20110219
  Serious: Yes (Hospitalization)
  Sender: FDA-Public Use
  Company Number: GXKR2010US07867

PATIENT
  Age: 68 Year
  Sex: Male

DRUGS (3)
  1. CICLOSPORIN (NGX) [Suspect]
     Indication: IMMUNOSUPPRESSION
     Route: 065
  2. PREDNISONE (NGX) [Suspect]
     Indication: IMMUNOSUPPRESSION
     Route: 065
  3. IMURAN [Suspect]
     Indication: IMMUNOSUPPRESSION
     Route: 065

REACTIONS (3)
  - BINOCULAR EYE MOVEMENT DISORDER [None]
  - FATIGUE [None]
  - HYPERTHYROIDISM [None]
